FAERS Safety Report 15345607 (Version 1)
Quarter: 2018Q3

REPORT INFORMATION
  Report Type: Spontaneous
  Country: US (occurrence: US)
  Receive Date: 20180904
  Receipt Date: 20180904
  Transmission Date: 20181010
  Serious: No
  Sender: FDA-Public Use
  Company Number: US-BRISTOL-MYERS SQUIBB COMPANY-BMS-2018-081852

PATIENT
  Sex: Female

DRUGS (2)
  1. NIVOLUMAB [Suspect]
     Active Substance: NIVOLUMAB
     Indication: ENDOMETRIAL CANCER
     Dosage: UNK
     Route: 065
  2. IPILIMUMAB [Suspect]
     Active Substance: IPILIMUMAB
     Indication: ENDOMETRIAL CANCER
     Dosage: UNK
     Route: 065

REACTIONS (2)
  - Hypophysitis [Unknown]
  - Product use in unapproved indication [Unknown]
